FAERS Safety Report 4309425-6 (Version None)
Quarter: 2004Q1

REPORT INFORMATION
  Report Type: 
  Country: None (occurrence: None)
  Receive Date: 20040302
  Receipt Date: 20031021
  Transmission Date: 20041129
  Serious: Yes (Life-Threatening, Hospitalization, Other)
  Sender: FDA-Public Use
  Company Number: PHBS2003JP11747

PATIENT
  Age: 36 Year
  Sex: Female
  Weight: 68 kg

DRUGS (16)
  1. TEGRETOL [Suspect]
     Indication: DEPRESSION
     Dosage: 200 MG/DAY
     Route: 048
     Dates: end: 20031016
  2. CYANAMIDE [Suspect]
     Indication: ALCOHOLISM
     Dosage: 6 ML/DAY
     Route: 048
     Dates: end: 20031016
  3. ANAFRANIL [Concomitant]
     Indication: DEPRESSION
     Dosage: 50 MG/DAY
     Route: 048
     Dates: end: 20031016
  4. PURSENNID [Concomitant]
     Indication: CONSTIPATION
     Dosage: 24 MG/DAY
     Route: 048
     Dates: end: 20031016
  5. HORIZON [Concomitant]
     Dosage: 6 MG/DAY
     Route: 048
     Dates: end: 20031016
  6. TRIOMIN [Concomitant]
     Dosage: 6 MG/DAY
     Route: 048
     Dates: end: 20031016
  7. MYSLEE [Concomitant]
     Indication: INSOMNIA
     Dosage: 10 G/DAY
     Route: 048
     Dates: end: 20031016
  8. RISUMIC [Concomitant]
     Indication: HYPOTENSION
     Dosage: 20 G/DAY
     Route: 048
     Dates: end: 20031016
  9. METLIGINE [Concomitant]
     Indication: HYPOTENSION
     Dosage: 6 G/DAY
     Route: 048
     Dates: end: 20031016
  10. BUFFERIN [Concomitant]
     Indication: HEADACHE
     Dosage: 660 G/DAY
     Route: 048
     Dates: end: 20031016
  11. LEVOTOMIN [Concomitant]
     Indication: DEPRESSION
     Dosage: 30 G/DAY
     Route: 048
     Dates: end: 20031016
  12. HIBERNA [Concomitant]
     Dosage: 60 G/DAY
     Route: 048
     Dates: end: 20031016
  13. SONAKON [Concomitant]
     Indication: DEPRESSION
     Dosage: 4 MG/DAY
     Route: 048
     Dates: end: 20031016
  14. WINTERMIN [Concomitant]
     Indication: NEUROSIS
     Dosage: 25 G/DAY
     Route: 048
     Dates: end: 20031016
  15. WASSER V GRAN. [Concomitant]
     Dosage: 1 G/DAY
     Route: 048
     Dates: end: 20031016
  16. SM [Concomitant]
     Dosage: 3.9 G/DAY
     Route: 048
     Dates: end: 20031016

REACTIONS (8)
  - COMA HEPATIC [None]
  - DIFFICULTY IN WALKING [None]
  - HAEMODIALYSIS [None]
  - HEPATIC ENZYME INCREASED [None]
  - HEPATITIS FULMINANT [None]
  - MALAISE [None]
  - PROTHROMBIN LEVEL DECREASED [None]
  - STAPHYLOCOCCAL SEPSIS [None]
